FAERS Safety Report 7437620-6 (Version None)
Quarter: 2011Q2

REPORT INFORMATION
  Report Type: 
  Country: None (occurrence: None)
  Receive Date: 20110426
  Receipt Date: 20110420
  Transmission Date: 20111010
  Serious: Yes (Hospitalization, Other)
  Sender: FDA-Public Use
  Company Number: US-ROCHE-473393

PATIENT
  Sex: Male
  Weight: 83.9 kg

DRUGS (1)
  1. ACCUTANE [Suspect]
     Route: 065
     Dates: start: 19930101, end: 19950101

REACTIONS (18)
  - BIPOLAR DISORDER [None]
  - TENDONITIS [None]
  - INTESTINAL HAEMORRHAGE [None]
  - SUICIDE ATTEMPT [None]
  - OVERDOSE [None]
  - PERITONITIS [None]
  - CHOLELITHIASIS [None]
  - CROHN'S DISEASE [None]
  - ANXIETY [None]
  - IRRITABLE BOWEL SYNDROME [None]
  - HERNIA [None]
  - INTESTINAL OBSTRUCTION [None]
  - INFLAMMATORY BOWEL DISEASE [None]
  - PANIC ATTACK [None]
  - SUICIDAL IDEATION [None]
  - DEPRESSION [None]
  - HAEMORRHOIDS [None]
  - ABSCESS [None]
